FAERS Safety Report 4273653-9 (Version None)
Quarter: 2004Q1

REPORT INFORMATION
  Report Type: 
  Country: None (occurrence: None)
  Receive Date: 20040116
  Receipt Date: 20040116
  Transmission Date: 20041129
  Serious: Yes (Life-Threatening)
  Sender: FDA-Public Use
  Company Number: None

PATIENT
  Age: 55 Year
  Sex: Female
  Weight: 115 kg

DRUGS (7)
  1. VENLAFAXINE HCL [Suspect]
     Indication: DEPRESSION
     Dosage: 150 MG DAILY ORAL
     Route: 048
     Dates: start: 20030508, end: 20040110
  2. FUROSEMIDE [Concomitant]
  3. EZETIMIBE [Concomitant]
  4. ATORVASTATIN [Concomitant]
  5. LEVOTHYROXINE SODIUM [Concomitant]
  6. TRANSDERMAL ESTROGEN [Concomitant]
  7. VALDECOXIB [Concomitant]

REACTIONS (4)
  - ALVEOLITIS ALLERGIC [None]
  - HYPERSENSITIVITY [None]
  - PNEUMONIA [None]
  - PNEUMONITIS [None]
